FAERS Safety Report 13191845 (Version 2)
Quarter: 2017Q1

REPORT INFORMATION
  Report Type: Report from Study
  Country: US (occurrence: US)
  Receive Date: 20170207
  Receipt Date: 20170307
  Transmission Date: 20170428
  Serious: Yes (Death, Hospitalization, Other)
  Sender: FDA-Public Use
  Company Number: US-009507513-1702USA000260

PATIENT
  Age: 74 Year
  Sex: Male

DRUGS (1)
  1. NOXAFIL [Suspect]
     Active Substance: POSACONAZOLE
     Dosage: 300 MG, QD
     Route: 048
     Dates: start: 201608

REACTIONS (2)
  - Malignant neoplasm progression [Fatal]
  - Adverse event [Unknown]

NARRATIVE: CASE EVENT DATE: 20170125
